FAERS Safety Report 7956008-2 (Version None)
Quarter: 2011Q4

REPORT INFORMATION
  Report Type: 
  Country: None (occurrence: None)
  Receive Date: 20111205
  Receipt Date: 20111129
  Transmission Date: 20120403
  Serious: Yes (Hospitalization, Other)
  Sender: FDA-Public Use
  Company Number: DE-AMGEN-DEUSP2011052721

PATIENT
  Sex: Male
  Weight: 58.5 kg

DRUGS (6)
  1. CLOPIDOGREL BISULFATE [Concomitant]
     Indication: CORONARY ARTERY DISEASE
     Dosage: 75 MG, UNK
     Route: 048
     Dates: start: 20110501
  2. CYCLOSPORINE [Concomitant]
     Indication: TRANSPLANT
     Dosage: 50 MG, UNK
     Route: 048
  3. RAMIPRIL [Concomitant]
  4. ASPIRIN [Concomitant]
     Indication: CORONARY ARTERY DISEASE
     Dosage: UNK
     Dates: start: 20110501
  5. ARANESP [Suspect]
     Indication: HAEMOGLOBIN DECREASED
     Dosage: 100 MUG, QWK
     Route: 042
     Dates: start: 20110704, end: 20111010
  6. LASIX [Concomitant]
     Dosage: 250 MG, UNK
     Route: 048

REACTIONS (25)
  - NECK MASS [None]
  - GOITRE [None]
  - ABDOMINAL PAIN [None]
  - GASTRITIS [None]
  - MUCOSAL DRYNESS [None]
  - HEPATOMEGALY [None]
  - HEPATIC CONGESTION [None]
  - DUODENITIS [None]
  - ANAEMIA [None]
  - HEPATIC FIBROSIS [None]
  - GENERAL PHYSICAL HEALTH DETERIORATION [None]
  - CACHEXIA [None]
  - THYROID CYST [None]
  - MASS [None]
  - MALNUTRITION [None]
  - COLON ADENOMA [None]
  - TRANSPLANT REJECTION [None]
  - WEIGHT DECREASED [None]
  - LEFT VENTRICULAR FAILURE [None]
  - PULMONARY CONGESTION [None]
  - HOSPITALISATION [None]
  - DRY SKIN [None]
  - HAEMORRHOIDS [None]
  - PLEURAL EFFUSION [None]
  - TONGUE DRY [None]
